FAERS Safety Report 11558610 (Version 1)
Quarter: 2015Q3

REPORT INFORMATION
  Report Type: Spontaneous
  Country: US (occurrence: None)
  Receive Date: 20150925
  Receipt Date: 20150925
  Transmission Date: 20151125
  Serious: No
  Sender: FDA-Public Use
  Company Number: None

PATIENT
  Age: 67 Year
  Sex: Female

DRUGS (23)
  1. ADVAIR DISKU AER [Concomitant]
  2. CITALOPRAM [Concomitant]
     Active Substance: CITALOPRAM HYDROBROMIDE
  3. FLAXSEED [Concomitant]
     Active Substance: FLAX SEED
  4. ALBUTEROL. [Concomitant]
     Active Substance: ALBUTEROL
  5. AMLODIPINE BESYLATE. [Concomitant]
     Active Substance: AMLODIPINE BESYLATE
  6. ANASTROZOLE. [Concomitant]
     Active Substance: ANASTROZOLE
  7. EXEMESTANE. [Concomitant]
     Active Substance: EXEMESTANE
  8. ADLT MULTIVI CHW GUMMIES [Concomitant]
  9. FUROSEMIDE. [Concomitant]
     Active Substance: FUROSEMIDE
  10. LOPRESSOR [Concomitant]
     Active Substance: METOPROLOL TARTRATE
  11. METFORMIN [Concomitant]
     Active Substance: METFORMIN HYDROCHLORIDE
  12. CLINDAMYCIN [Concomitant]
     Active Substance: CLINDAMYCIN\CLINDAMYCIN PHOSPHATE
  13. NITRO-DUR [Concomitant]
     Active Substance: NITROGLYCERIN
  14. NOVOLIN N [Concomitant]
     Active Substance: INSULIN HUMAN
  15. KETOTIF FUM [Concomitant]
  16. MICRO-K [Concomitant]
     Active Substance: POTASSIUM CHLORIDE
  17. PRAVASTATIN [Concomitant]
     Active Substance: PRAVASTATIN\PRAVASTATIN SODIUM
  18. PROBIOTIC [Concomitant]
     Active Substance: PROBIOTICS NOS
  19. AFINITOR [Suspect]
     Active Substance: EVEROLIMUS
     Indication: BREAST CANCER
     Route: 048
     Dates: start: 20150507
  20. ASPIRIN. [Concomitant]
     Active Substance: ASPIRIN
  21. FENOFIBRATE. [Concomitant]
     Active Substance: FENOFIBRATE
  22. LISINOPRIL. [Concomitant]
     Active Substance: LISINOPRIL
  23. NITROGLYCER [Concomitant]

REACTIONS (2)
  - Nausea [None]
  - Vomiting [None]

NARRATIVE: CASE EVENT DATE: 20150901
